FAERS Safety Report 16218341 (Version 2)
Quarter: 2019Q2

REPORT INFORMATION
  Report Type: Spontaneous
  Country: US (occurrence: US)
  Receive Date: 20190419
  Receipt Date: 20190530
  Transmission Date: 20190711
  Serious: Yes (Other)
  Sender: FDA-Public Use
  Company Number: US-PFIZER INC-2019161939

PATIENT
  Sex: Female

DRUGS (1)
  1. ADVIL [Suspect]
     Active Substance: IBUPROFEN
     Dosage: 200 MG, UNK

REACTIONS (8)
  - Bronchitis [Unknown]
  - Multiple fractures [Unknown]
  - Upper limb fracture [Unknown]
  - Ankle fracture [Unknown]
  - Irritable bowel syndrome [Unknown]
  - Clumsiness [Unknown]
  - Eye disorder [Unknown]
  - Arthritis [Unknown]
